FAERS Safety Report 13265099 (Version 2)
Quarter: 2017Q1

REPORT INFORMATION
  Report Type: Spontaneous
  Country: JP (occurrence: JP)
  Receive Date: 20170223
  Receipt Date: 20170308
  Transmission Date: 20170428
  Serious: Yes (Hospitalization, Other)
  Sender: FDA-Public Use
  Company Number: JP-GLAXOSMITHKLINE-JP2017JPN003120

PATIENT
  Sex: Female

DRUGS (9)
  1. LAMICTAL [Suspect]
     Active Substance: LAMOTRIGINE
     Indication: BIPOLAR DISORDER
     Dosage: 25 MG, QD
     Route: 048
     Dates: start: 20140221, end: 201403
  2. VITAMEDIN [Concomitant]
     Active Substance: CYANOCOBALAMIN\PYRIDOXINE HYDROCHLORIDE\THIAMINE
     Indication: VITAMIN SUPPLEMENTATION
     Dosage: 75 MG, 1D
     Dates: start: 20140303, end: 201403
  3. CINAL [Concomitant]
     Active Substance: ASCORBIC ACID\CALCIUM PANTOTHENATE
     Indication: VITAMIN SUPPLEMENTATION
     Dosage: 3 G, 1D
     Dates: start: 20140303, end: 201403
  4. FLUNITRAZEPAM [Concomitant]
     Active Substance: FLUNITRAZEPAM
     Dosage: 2 MG, 1D
  5. RIVOTRIL [Concomitant]
     Active Substance: CLONAZEPAM
     Dosage: 1 MG, 1D
  6. TETRAMIDE [Suspect]
     Active Substance: MIANSERIN
     Indication: DEPRESSIVE SYMPTOM
     Dosage: 10 MG, 1D
     Route: 048
     Dates: start: 20140221, end: 201403
  7. OMEPRAZOLE. [Concomitant]
     Active Substance: OMEPRAZOLE
     Dosage: 10 MG, 1D
  8. LEXOTAN [Concomitant]
     Active Substance: BROMAZEPAM
     Dosage: 4 MG, 1D
  9. CYMBALTA [Concomitant]
     Active Substance: DULOXETINE HYDROCHLORIDE
     Indication: DEPRESSIVE SYMPTOM
     Dosage: 20 MG, 1D
     Dates: start: 20140303, end: 201403

REACTIONS (9)
  - Stevens-Johnson syndrome [Recovering/Resolving]
  - Drug eruption [Unknown]
  - Oral mucosa erosion [Unknown]
  - Pyrexia [Recovered/Resolved]
  - Aphthous ulcer [Recovered/Resolved]
  - Lip erosion [Unknown]
  - Rash generalised [Recovered/Resolved]
  - Erythema multiforme [Unknown]
  - Lymphadenopathy [Unknown]

NARRATIVE: CASE EVENT DATE: 2014
